FAERS Safety Report 12623537 (Version 2)
Quarter: 2016Q3

REPORT INFORMATION
  Report Type: Report from Study
  Country: CA (occurrence: CA)
  Receive Date: 20160804
  Receipt Date: 20160816
  Transmission Date: 20161109
  Serious: Yes (Other)
  Sender: FDA-Public Use
  Company Number: CA-ABBVIE-16K-028-1691079-00

PATIENT
  Sex: Female
  Weight: 94.4 kg

DRUGS (2)
  1. HUMIRA [Suspect]
     Active Substance: ADALIMUMAB
     Indication: PSORIATIC ARTHROPATHY
     Route: 058
     Dates: start: 20150107
  2. METHOTREXATE. [Concomitant]
     Active Substance: METHOTREXATE
     Indication: PRODUCT USED FOR UNKNOWN INDICATION
     Route: 048

REACTIONS (4)
  - Intermittent claudication [Recovering/Resolving]
  - Coronary artery occlusion [Recovering/Resolving]
  - Cardiovascular disorder [Not Recovered/Not Resolved]
  - Arteriosclerosis coronary artery [Recovering/Resolving]
